FAERS Safety Report 10570079 (Version 1)
Quarter: 2014Q4

REPORT INFORMATION
  Report Type: Spontaneous
  Country: None (occurrence: None)
  Receive Date: 20141106
  Receipt Date: 20141106
  Transmission Date: 20150529
  Serious: Yes (Disabling)
  Sender: FDA-Public Use
  Company Number: None

PATIENT
  Age: 70 Year
  Sex: Male

DRUGS (1)
  1. XARELTO [Suspect]
     Active Substance: RIVAROXABAN
     Dates: start: 20140530, end: 20141031

REACTIONS (7)
  - Peripheral swelling [None]
  - Back pain [None]
  - Joint swelling [None]
  - Pneumonia [None]
  - Rotator cuff syndrome [None]
  - Product substitution issue [None]
  - Dyspnoea [None]
